FAERS Safety Report 13132252 (Version 2)
Quarter: 2017Q1

REPORT INFORMATION
  Report Type: Spontaneous
  Country: JP (occurrence: JP)
  Receive Date: 20170120
  Receipt Date: 20170213
  Transmission Date: 20170428
  Serious: Yes (Other)
  Sender: FDA-Public Use
  Company Number: JP-B.I. PHARMACEUTICALS,INC./RIDGEFIELD-2017-NB-000205

PATIENT
  Age: 86 Year
  Sex: Male

DRUGS (1)
  1. TRAZENTA [Suspect]
     Active Substance: LINAGLIPTIN
     Indication: DIABETES MELLITUS
     Route: 048
     Dates: end: 201611

REACTIONS (4)
  - Chronic kidney disease [Unknown]
  - Gastric cancer [Unknown]
  - Pemphigoid [Unknown]
  - Skin disorder [Unknown]

NARRATIVE: CASE EVENT DATE: 201612
